FAERS Safety Report 4886100-0 (Version None)
Quarter: 2006Q1

REPORT INFORMATION
  Report Type: 
  Country: None (occurrence: None)
  Receive Date: 20060118
  Receipt Date: 20060118
  Transmission Date: 20060701
  Serious: Yes (Hospitalization)
  Sender: FDA-Public Use
  Company Number: None

PATIENT
  Age: 22 Year
  Sex: Male

DRUGS (2)
  1. IBUPROFEN [Suspect]
     Indication: TOOTHACHE
     Dosage: 1-2 TABS/DAY
  2. ALEVE [Suspect]
     Indication: TOOTHACHE
     Dosage: 6-8 TABS/DAY

REACTIONS (1)
  - DUODENAL ULCER PERFORATION [None]
